FAERS Safety Report 18265244 (Version 3)
Quarter: 2021Q1

REPORT INFORMATION
  Report Type: Spontaneous
  Country: US (occurrence: US)
  Receive Date: 20200914
  Receipt Date: 20210210
  Transmission Date: 20210419
  Serious: Yes (Other)
  Sender: FDA-Public Use
  Company Number: US-GILEAD-2020-0494605

PATIENT
  Age: 47 Year
  Sex: Female
  Weight: 81.63 kg

DRUGS (81)
  1. STRIBILD [Suspect]
     Active Substance: COBICISTAT\ELVITEGRAVIR\EMTRICITABINE\TENOFOVIR DISOPROXIL FUMARATE
     Indication: HIV INFECTION
     Dosage: UNK
     Route: 048
     Dates: start: 20150423, end: 20150523
  2. BUPROPION. [Concomitant]
     Active Substance: BUPROPION
  3. NITROFURANTOIN. [Concomitant]
     Active Substance: NITROFURANTOIN
  4. OXYCODONE [Concomitant]
     Active Substance: OXYCODONE
  5. PROLIA [Concomitant]
     Active Substance: DENOSUMAB
  6. TIZANIDINE. [Concomitant]
     Active Substance: TIZANIDINE
  7. ALPRAZOLAM. [Concomitant]
     Active Substance: ALPRAZOLAM
  8. BUDESONIDE. [Concomitant]
     Active Substance: BUDESONIDE
  9. LISINOPRIL. [Concomitant]
     Active Substance: LISINOPRIL
  10. PRAVASTATIN. [Concomitant]
     Active Substance: PRAVASTATIN
  11. ISENTRESS [Concomitant]
     Active Substance: RALTEGRAVIR POTASSIUM
  12. PREZISTA [Concomitant]
     Active Substance: DARUNAVIR ETHANOLATE
  13. TIVICAY [Concomitant]
     Active Substance: DOLUTEGRAVIR SODIUM
  14. ACETAMINOPHEN. [Concomitant]
     Active Substance: ACETAMINOPHEN
  15. AMOXICILLIN. [Concomitant]
     Active Substance: AMOXICILLIN
  16. CEFPROZIL. [Concomitant]
     Active Substance: CEFPROZIL
  17. CLINDAMYCIN. [Concomitant]
     Active Substance: CLINDAMYCIN
  18. ESTRACE [Concomitant]
     Active Substance: ESTRADIOL
  19. PROMETHAZINE [Concomitant]
     Active Substance: PROMETHAZINE HYDROCHLORIDE
  20. TEMAZEPAM. [Concomitant]
     Active Substance: TEMAZEPAM
  21. TOBRAMYCIN. [Concomitant]
     Active Substance: TOBRAMYCIN
  22. ZOLOFT [Concomitant]
     Active Substance: SERTRALINE HYDROCHLORIDE
  23. EVOTAZ [Concomitant]
     Active Substance: ATAZANAVIR SULFATE\COBICISTAT
  24. ATORVASTATIN [Concomitant]
     Active Substance: ATORVASTATIN
  25. ATOVAQUONE. [Concomitant]
     Active Substance: ATOVAQUONE
  26. AZITHROMYCIN ANHYDROUS. [Concomitant]
     Active Substance: AZITHROMYCIN ANHYDROUS
  27. DOXYCYCLINE. [Concomitant]
     Active Substance: DOXYCYCLINE
  28. HYDROCODONE [Concomitant]
     Active Substance: HYDROCODONE
  29. HYDROCODONE BITARTRATE AND ACETAMINOPHEN [Concomitant]
     Active Substance: ACETAMINOPHEN\HYDROCODONE BITARTRATE
  30. IBUPROFEN. [Concomitant]
     Active Substance: IBUPROFEN
  31. MELOXICAM. [Concomitant]
     Active Substance: MELOXICAM
  32. METHYLPREDNISOLONE. [Concomitant]
     Active Substance: METHYLPREDNISOLONE
  33. SERTRALINE [Concomitant]
     Active Substance: SERTRALINE HYDROCHLORIDE
  34. DESCOVY [Concomitant]
     Active Substance: EMTRICITABINE\TENOFOVIR ALAFENAMIDE FUMARATE
  35. CEPHALEXIN AMEL [Concomitant]
     Active Substance: CEPHALEXIN
  36. CLONAZEPAM. [Concomitant]
     Active Substance: CLONAZEPAM
  37. ESTRADIOL. [Concomitant]
     Active Substance: ESTRADIOL
  38. LOSARTAN. [Concomitant]
     Active Substance: LOSARTAN
  39. MEDROXYPROGESTERONE [Concomitant]
     Active Substance: MEDROXYPROGESTERONE
  40. OSELTAMIVIR [Concomitant]
     Active Substance: OSELTAMIVIR
  41. VENLAFAXINE [Concomitant]
     Active Substance: VENLAFAXINE HYDROCHLORIDE
  42. DICLOFENAC [Concomitant]
     Active Substance: DICLOFENAC
  43. FLUCONAZOLE. [Concomitant]
     Active Substance: FLUCONAZOLE
  44. FLUTICASONE. [Concomitant]
     Active Substance: FLUTICASONE
  45. GLIPIZIDE. [Concomitant]
     Active Substance: GLIPIZIDE
  46. LIDOCAINE. [Concomitant]
     Active Substance: LIDOCAINE
  47. PRAZOSIN. [Concomitant]
     Active Substance: PRAZOSIN
  48. TRICOR [ADENOSINE] [Concomitant]
     Active Substance: ADENOSINE
  49. TRUVADA [Suspect]
     Active Substance: EMTRICITABINE\TENOFOVIR DISOPROXIL FUMARATE
     Indication: HIV INFECTION
     Dosage: UNK
     Route: 048
     Dates: start: 20150505, end: 20170427
  50. ALENDRONATE [Concomitant]
     Active Substance: ALENDRONATE SODIUM
  51. BENZONATATE. [Concomitant]
     Active Substance: BENZONATATE
  52. CETIRIZINE [Concomitant]
     Active Substance: CETIRIZINE HYDROCHLORIDE
  53. DIGOXIN. [Concomitant]
     Active Substance: DIGOXIN
  54. FENOFIBRATE. [Concomitant]
     Active Substance: FENOFIBRATE
  55. LEXAPRO [Concomitant]
     Active Substance: ESCITALOPRAM OXALATE
  56. LIPITOR [Concomitant]
     Active Substance: ATORVASTATIN CALCIUM
  57. NABUMETONE. [Concomitant]
     Active Substance: NABUMETONE
  58. PHENAZOPYRIDINE. [Concomitant]
     Active Substance: PHENAZOPYRIDINE
  59. PROAIR HFA [Concomitant]
     Active Substance: ALBUTEROL SULFATE
  60. TRIAMCINOLONE [Concomitant]
     Active Substance: TRIAMCINOLONE
  61. VIREAD [Suspect]
     Active Substance: TENOFOVIR DISOPROXIL FUMARATE
     Indication: HIV INFECTION
     Dosage: UNK
     Route: 048
     Dates: start: 2011
  62. ISENTRESS [Concomitant]
     Active Substance: RALTEGRAVIR POTASSIUM
  63. KALETRA [Concomitant]
     Active Substance: LOPINAVIR\RITONAVIR
  64. REYATAZ [Concomitant]
     Active Substance: ATAZANAVIR SULFATE
  65. ACTOS [Concomitant]
     Active Substance: PIOGLITAZONE HYDROCHLORIDE
  66. AMOXI?CLAV [Concomitant]
     Active Substance: AMOXICILLIN\CLAVULANATE POTASSIUM
  67. BUSPIRONE [Concomitant]
     Active Substance: BUSPIRONE HYDROCHLORIDE
  68. CIPROFLOXACIN. [Concomitant]
     Active Substance: CIPROFLOXACIN
  69. CYCLOBENZAPRINE. [Concomitant]
     Active Substance: CYCLOBENZAPRINE
  70. DAPSONE. [Concomitant]
     Active Substance: DAPSONE
  71. DEPO?PROVERA [Concomitant]
     Active Substance: MEDROXYPROGESTERONE ACETATE
  72. DIAZEPAM. [Concomitant]
     Active Substance: DIAZEPAM
  73. EFFEXOR [Concomitant]
     Active Substance: VENLAFAXINE HYDROCHLORIDE
  74. LOSARTAN POTASSIUM. [Concomitant]
     Active Substance: LOSARTAN POTASSIUM
  75. METFORMIN [Concomitant]
     Active Substance: METFORMIN HYDROCHLORIDE
  76. NYSTATIN. [Concomitant]
     Active Substance: NYSTATIN
  77. PREDNISONE. [Concomitant]
     Active Substance: PREDNISONE
  78. RANITIDINE. [Concomitant]
     Active Substance: RANITIDINE
  79. SULFAMETHOXAZOLE [Concomitant]
     Active Substance: SULFAMETHOXAZOLE
  80. WELLBUTRIN [Concomitant]
     Active Substance: BUPROPION HYDROCHLORIDE
  81. ZOLPIDEM [Concomitant]
     Active Substance: ZOLPIDEM TARTRATE

REACTIONS (9)
  - Spinal fracture [Unknown]
  - Anhedonia [Not Recovered/Not Resolved]
  - Lower limb fracture [Recovered/Resolved]
  - Upper limb fracture [Recovered/Resolved]
  - Multiple fractures [Recovered/Resolved]
  - Osteoporosis [Not Recovered/Not Resolved]
  - Anxiety [Not Recovered/Not Resolved]
  - Pain [Not Recovered/Not Resolved]
  - Emotional distress [Not Recovered/Not Resolved]

NARRATIVE: CASE EVENT DATE: 2015
